FAERS Safety Report 4848212-7 (Version None)
Quarter: 2005Q4

REPORT INFORMATION
  Report Type: 
  Country: None (occurrence: None)
  Receive Date: 20051206
  Receipt Date: 20051121
  Transmission Date: 20060501
  Serious: Yes (Other)
  Sender: FDA-Public Use
  Company Number: US200511001904

PATIENT
  Age: 10 Year
  Sex: Male
  Weight: 99.8 kg

DRUGS (1)
  1. STRATTERA [Suspect]

REACTIONS (1)
  - WEIGHT INCREASED [None]
